FAERS Safety Report 4644749-4 (Version None)
Quarter: 2005Q2

REPORT INFORMATION
  Report Type: 
  Country: None (occurrence: None)
  Receive Date: 20050426
  Receipt Date: 20050414
  Transmission Date: 20051028
  Serious: Yes (Hospitalization)
  Sender: FDA-Public Use
  Company Number: 200511351FR

PATIENT
  Age: 85 Year
  Sex: Male

DRUGS (11)
  1. DAONIL [Suspect]
     Indication: DIABETES MELLITUS NON-INSULIN-DEPENDENT
     Route: 048
     Dates: end: 20041029
  2. ALDACTONE [Concomitant]
     Indication: ESSENTIAL HYPERTENSION
     Route: 048
  3. APROVEL [Concomitant]
     Indication: ESSENTIAL HYPERTENSION
     Route: 048
     Dates: start: 20041028
  4. CELEBREX [Concomitant]
     Indication: OSTEOARTHRITIS
     Route: 048
     Dates: start: 20041028, end: 20041103
  5. ZOCOR [Concomitant]
     Indication: LIPID METABOLISM DISORDER
     Route: 048
     Dates: start: 20041028
  6. CORDARONE [Concomitant]
     Indication: ARRHYTHMIA
     Route: 048
  7. PLAVIX [Concomitant]
     Route: 048
  8. LASILIX [Concomitant]
     Route: 048
  9. CARDENSIEL [Concomitant]
     Route: 048
  10. DI-ANTALVIC [Concomitant]
     Route: 048
  11. FUMAFER [Concomitant]
     Route: 048

REACTIONS (6)
  - ACUTE PRERENAL FAILURE [None]
  - HYPOGLYCAEMIA [None]
  - HYPONATRAEMIA [None]
  - HYPOTENSION [None]
  - LEUKOCYTOSIS [None]
  - RENAL FAILURE ACUTE [None]
